FAERS Safety Report 13775165 (Version 4)
Quarter: 2017Q3

REPORT INFORMATION
  Report Type: Spontaneous
  Country: DE (occurrence: DE)
  Receive Date: 20170720
  Receipt Date: 20170821
  Transmission Date: 20171127
  Serious: Yes (Other)
  Sender: FDA-Public Use
  Company Number: DE-TEVA-788374GER

PATIENT
  Sex: Female

DRUGS (5)
  1. SODIUM BICARBONATE. [Concomitant]
     Active Substance: SODIUM BICARBONATE
     Route: 064
  2. COLESTILAN [Concomitant]
     Active Substance: COLESTILAN CHLORIDE
     Route: 064
  3. XIPAMIDE [Concomitant]
     Active Substance: XIPAMIDE
     Route: 064
  4. BISOPROLOL [Suspect]
     Active Substance: BISOPROLOL
     Indication: HYPERTENSION
     Route: 064
  5. CANDESARTAN CILEXETIL. [Suspect]
     Active Substance: CANDESARTAN CILEXETIL
     Indication: HYPERTENSION
     Dosage: APPROXIMATELY FROM THE 31ST TO 33RD WEEK OF PREGNANCY
     Route: 064

REACTIONS (4)
  - Anuria [Recovered/Resolved]
  - Acute kidney injury [Recovered/Resolved]
  - Neonatal hypotension [Recovered/Resolved]
  - Foetal exposure during pregnancy [Unknown]
